FAERS Safety Report 12185596 (Version 9)
Quarter: 2017Q1

REPORT INFORMATION
  Report Type: Spontaneous
  Country: US (occurrence: US)
  Receive Date: 20160316
  Receipt Date: 20170113
  Transmission Date: 20170428
  Serious: Yes (Hospitalization, Other)
  Sender: FDA-Public Use
  Company Number: US-TEVA-642848USA

PATIENT
  Age: 51 Year
  Sex: Female
  Weight: 64.92 kg

DRUGS (13)
  1. NORCO [Concomitant]
     Active Substance: ACETAMINOPHEN\HYDROCODONE BITARTRATE
     Dosage: 10/325MG
  2. CHLORZOXAZONE. [Concomitant]
     Active Substance: CHLORZOXAZONE
  3. ZECUITY [Suspect]
     Active Substance: SUMATRIPTAN SUCCINATE
     Route: 062
     Dates: start: 20160303, end: 20160303
  4. GABAPENTIN. [Concomitant]
     Active Substance: GABAPENTIN
     Dosage: 600 MILLIGRAM DAILY;
     Route: 048
  5. MAXALT [Concomitant]
     Active Substance: RIZATRIPTAN BENZOATE
  6. NEURONTIN [Concomitant]
     Active Substance: GABAPENTIN
     Dosage: 900 MILLIGRAM DAILY;
  7. ZECUITY [Suspect]
     Active Substance: SUMATRIPTAN SUCCINATE
     Indication: MIGRAINE
     Route: 062
     Dates: start: 201603, end: 201603
  8. TOPAMAX [Concomitant]
     Active Substance: TOPIRAMATE
  9. XANAX [Concomitant]
     Active Substance: ALPRAZOLAM
  10. ESCITALOPRAM [Concomitant]
     Active Substance: ESCITALOPRAM OXALATE
     Route: 048
  11. VITAMIN D3 [Concomitant]
     Active Substance: CHOLECALCIFEROL
     Route: 048
  12. NEURONTIN [Concomitant]
     Active Substance: GABAPENTIN
     Dosage: 1200 MILLIGRAM DAILY;
  13. HYDROCODONE W/ACETAMINOPHEN [Concomitant]
     Active Substance: ACETAMINOPHEN\HYDROCODONE BITARTRATE
     Route: 048

REACTIONS (17)
  - Application site erythema [Not Recovered/Not Resolved]
  - Application site exfoliation [Not Recovered/Not Resolved]
  - Tooth fracture [Unknown]
  - Chemical injury [Recovered/Resolved with Sequelae]
  - Drug dependence [Recovered/Resolved]
  - Abasia [Unknown]
  - Application site pain [Not Recovered/Not Resolved]
  - Hypotonia [Not Recovered/Not Resolved]
  - Chest pain [Recovered/Resolved]
  - Product physical issue [Unknown]
  - Muscular weakness [Not Recovered/Not Resolved]
  - Burns first degree [Not Recovered/Not Resolved]
  - Drug withdrawal syndrome [Recovered/Resolved]
  - Application site burn [Not Recovered/Not Resolved]
  - Application site discolouration [Not Recovered/Not Resolved]
  - Pain in extremity [Not Recovered/Not Resolved]
  - Application site paraesthesia [Recovering/Resolving]

NARRATIVE: CASE EVENT DATE: 2016
